FAERS Safety Report 18660950 (Version 2)
Quarter: 2020Q4

REPORT INFORMATION
  Report Type: Spontaneous
  Country: US (occurrence: US)
  Receive Date: 20201224
  Receipt Date: 20201229
  Transmission Date: 20210114
  Serious: Yes (Life-Threatening, Other)
  Sender: FDA-Public Use
  Company Number: US-PFIZER INC-2020499077

PATIENT
  Age: 76 Year
  Sex: Female

DRUGS (2)
  1. METHOTREXATE SODIUM. [Suspect]
     Active Substance: METHOTREXATE SODIUM
     Indication: ARTHRITIS
     Dosage: 10 MG, DAILY (INSTEAD OF WEEKLY )
  2. PREDNISONE. [Concomitant]
     Active Substance: PREDNISONE
     Indication: DERMATITIS BULLOUS
     Dosage: UNK

REACTIONS (6)
  - Toxicity to various agents [Unknown]
  - Pancytopenia [Unknown]
  - Epidermal necrosis [Unknown]
  - Hypoalbuminaemia [Unknown]
  - Acute kidney injury [Unknown]
  - Prescribed overdose [Unknown]
